FAERS Safety Report 16847275 (Version 2)
Quarter: 2019Q4

REPORT INFORMATION
  Report Type: Report from Study
  Country: US (occurrence: US)
  Receive Date: 20190924
  Receipt Date: 20191120
  Transmission Date: 20200122
  Serious: Yes (Hospitalization)
  Sender: FDA-Public Use
  Company Number: US-ACTELION-A-NJ2019-194572

PATIENT
  Age: 59 Year
  Sex: Female
  Weight: 77.1 kg

DRUGS (3)
  1. SILDENAFIL CITRATE. [Concomitant]
     Active Substance: SILDENAFIL CITRATE
  2. TYVASO [Concomitant]
     Active Substance: TREPROSTINIL
  3. OPSUMIT [Suspect]
     Active Substance: MACITENTAN
     Indication: PULMONARY ARTERIAL HYPERTENSION
     Dosage: 10 MG, QD
     Route: 048
     Dates: start: 201906

REACTIONS (10)
  - Dyspnoea [Unknown]
  - Nasopharyngitis [Not Recovered/Not Resolved]
  - Nasal congestion [Not Recovered/Not Resolved]
  - Pneumonia [Unknown]
  - Product dose omission [Unknown]
  - Fluid retention [Unknown]
  - Oropharyngeal pain [Not Recovered/Not Resolved]
  - Pyrexia [Unknown]
  - Malaise [Unknown]
  - Peripheral swelling [Recovered/Resolved]

NARRATIVE: CASE EVENT DATE: 20190819
